FAERS Safety Report 17801340 (Version 2)
Quarter: 2020Q3

REPORT INFORMATION
  Report Type: Other
  Country: US (occurrence: US)
  Receive Date: 20200519
  Receipt Date: 20200722
  Transmission Date: 20201102
  Serious: Yes (Other)
  Sender: FDA-Public Use
  Company Number: US-ROCHE-2599191

PATIENT
  Sex: Female

DRUGS (2)
  1. MYCOPHENOLATE MOFETIL. [Suspect]
     Active Substance: MYCOPHENOLATE MOFETIL
     Indication: PRODUCT USED FOR UNKNOWN INDICATION
     Route: 065
  2. VALGANCICLOVIR. [Suspect]
     Active Substance: VALGANCICLOVIR
     Indication: RENAL TRANSPLANT
     Dosage: 450MG 2 TABLETS BID
     Route: 065

REACTIONS (7)
  - Kidney infection [Unknown]
  - Abdominal discomfort [Unknown]
  - Off label use [Unknown]
  - Intentional product misuse [Unknown]
  - Amnesia [Unknown]
  - Cytomegalovirus infection [Unknown]
  - BK virus infection [Unknown]
